FAERS Safety Report 25855718 (Version 1)
Quarter: 2025Q3

REPORT INFORMATION
  Report Type: Spontaneous
  Country: US (occurrence: US)
  Receive Date: 20250928
  Receipt Date: 20250928
  Transmission Date: 20251021
  Serious: No
  Sender: ELI LILLY AND COMPANY
  Company Number: US-ELI_LILLY_AND_COMPANY-US202509021640

PATIENT
  Age: 60 Year
  Sex: Female

DRUGS (4)
  1. BASAGLAR [Suspect]
     Active Substance: INSULIN GLARGINE
     Indication: Diabetes mellitus
     Route: 065
     Dates: start: 202504
  2. BASAGLAR [Suspect]
     Active Substance: INSULIN GLARGINE
     Route: 065
     Dates: start: 202509
  3. HUMULIN R [Suspect]
     Active Substance: INSULIN HUMAN
     Indication: Product used for unknown indication
     Route: 065
  4. HUMALOG [Suspect]
     Active Substance: INSULIN LISPRO
     Indication: Product used for unknown indication
     Route: 065

REACTIONS (5)
  - Abdominal pain upper [Unknown]
  - Abdominal distension [Unknown]
  - Joint swelling [Unknown]
  - Swelling face [Unknown]
  - Peripheral swelling [Unknown]
